FAERS Safety Report 14619021 (Version 1)
Quarter: 2018Q1

REPORT INFORMATION
  Report Type: Report from Study
  Country: CA (occurrence: CA)
  Receive Date: 20180309
  Receipt Date: 20180309
  Transmission Date: 20180509
  Serious: Yes (Other)
  Sender: FDA-Public Use
  Company Number: CA-TEVA-2018-CA-845967

PATIENT
  Age: 41 Year
  Sex: Female

DRUGS (15)
  1. COPAXONE [Suspect]
     Active Substance: GLATIRAMER ACETATE
     Indication: MULTIPLE SCLEROSIS
     Dosage: 20 MILLIGRAM DAILY;
     Route: 058
     Dates: start: 20170726, end: 20180126
  2. ZESTRIL [Concomitant]
     Active Substance: LISINOPRIL
  3. MONOCOR [Concomitant]
     Active Substance: BISOPROLOL FUMARATE
  4. LANCORA [Concomitant]
     Active Substance: IVABRADINE
  5. LOLO [Concomitant]
     Active Substance: ETHINYL ESTRADIOL\NORETHINDRONE ACETATE
  6. AVENTYL [Concomitant]
     Active Substance: NORTRIPTYLINE HYDROCHLORIDE
  7. ENTRESTO [Concomitant]
     Active Substance: SACUBITRIL\VALSARTAN
  8. VITAMIN D [Concomitant]
     Active Substance: CHOLECALCIFEROL
  9. TEVA-ELETRIPTAN [Concomitant]
  10. CRESTOR [Concomitant]
     Active Substance: ROSUVASTATIN CALCIUM
  11. APO-PANTOPRAZOLE [Concomitant]
     Active Substance: PANTOPRAZOLE SODIUM
  12. TEVA-PREGABALIN [Concomitant]
     Active Substance: PREGABALIN
  13. SANDOZ-METOPROLOL [Concomitant]
  14. SANDOZ-ATORVASTATIN [Concomitant]
  15. SUBLINOX [Concomitant]
     Active Substance: ZOLPIDEM TARTRATE

REACTIONS (12)
  - Dizziness [Unknown]
  - Palpitations [Recovered/Resolved]
  - Cardiac disorder [Unknown]
  - Fatigue [Not Recovered/Not Resolved]
  - Myocarditis [Recovering/Resolving]
  - Bacterial infection [Unknown]
  - Throat tightness [Recovered/Resolved]
  - Immediate post-injection reaction [Recovered/Resolved]
  - Chest discomfort [Recovered/Resolved]
  - Dyspnoea [Recovered/Resolved]
  - Flushing [Recovered/Resolved]
  - Back pain [Not Recovered/Not Resolved]

NARRATIVE: CASE EVENT DATE: 20171226
